FAERS Safety Report 12240644 (Version 2)
Quarter: 2016Q2

REPORT INFORMATION
  Report Type: Spontaneous
  Country: FR (occurrence: FR)
  Receive Date: 20160406
  Receipt Date: 20160629
  Transmission Date: 20160815
  Serious: Yes (Hospitalization)
  Sender: FDA-Public Use
  Company Number: FR-ROCHE-1736733

PATIENT
  Age: 49 Year
  Sex: Male

DRUGS (18)
  1. MELPHALAN [Concomitant]
     Active Substance: MELPHALAN
  2. DEXAMETHASONE. [Suspect]
     Active Substance: DEXAMETHASONE
     Indication: B-CELL LYMPHOMA
     Route: 065
     Dates: start: 20141229, end: 20150218
  3. CETIRIZINE DIHYDROCHLORIDE [Suspect]
     Active Substance: CETIRIZINE HYDROCHLORIDE
     Indication: PRODUCT USED FOR UNKNOWN INDICATION
     Route: 048
     Dates: start: 20160209, end: 20160223
  4. PREDNISONE. [Suspect]
     Active Substance: PREDNISONE
     Indication: B-CELL LYMPHOMA
     Route: 065
     Dates: start: 20141002, end: 20141028
  5. CYCLOPHOSPHAMIDE. [Suspect]
     Active Substance: CYCLOPHOSPHAMIDE
     Indication: B-CELL LYMPHOMA
     Route: 065
     Dates: start: 20141128, end: 20141128
  6. MABTHERA [Suspect]
     Active Substance: RITUXIMAB
     Indication: B-CELL LYMPHOMA
     Route: 065
     Dates: start: 20141002, end: 20141128
  7. CITALOPRAM [Suspect]
     Active Substance: CITALOPRAM HYDROBROMIDE
     Indication: PRODUCT USED FOR UNKNOWN INDICATION
     Route: 048
  8. CISPLATINE [Suspect]
     Active Substance: CISPLATIN
     Indication: B-CELL LYMPHOMA
     Route: 065
     Dates: start: 20141229, end: 20150218
  9. BLEOMYCINE BELLON [Suspect]
     Active Substance: BLEOMYCIN SULFATE
     Indication: B-CELL LYMPHOMA
     Route: 065
     Dates: start: 20141002, end: 20141128
  10. ZOLPIDEM [Suspect]
     Active Substance: ZOLPIDEM\ZOLPIDEM TARTRATE
     Indication: PRODUCT USED FOR UNKNOWN INDICATION
     Route: 048
  11. VALACICLOVIR [Suspect]
     Active Substance: VALACYCLOVIR HYDROCHLORIDE
     Indication: PRODUCT USED FOR UNKNOWN INDICATION
     Route: 048
     Dates: start: 201503, end: 201503
  12. BUSULFAN. [Concomitant]
     Active Substance: BUSULFAN
     Route: 065
     Dates: start: 20150324
  13. ARACYTINE [Suspect]
     Active Substance: CYTARABINE
     Indication: B-CELL LYMPHOMA
     Route: 065
     Dates: start: 20141229, end: 20150218
  14. ADRIAMYCIN [Suspect]
     Active Substance: DOXORUBICIN HYDROCHLORIDE
     Indication: B-CELL LYMPHOMA
     Route: 065
     Dates: start: 20141002, end: 20141128
  15. ELDISINE [Suspect]
     Active Substance: VINDESINE SULFATE
     Indication: B-CELL LYMPHOMA
     Route: 065
     Dates: start: 20141002, end: 20141128
  16. ARA-C [Concomitant]
     Active Substance: CYTARABINE
  17. BACTRIM [Suspect]
     Active Substance: SULFAMETHOXAZOLE\TRIMETHOPRIM
     Indication: PRODUCT USED FOR UNKNOWN INDICATION
     Route: 048
     Dates: start: 201503
  18. ZELITREX [Suspect]
     Active Substance: VALACYCLOVIR HYDROCHLORIDE
     Indication: PRODUCT USED FOR UNKNOWN INDICATION
     Route: 048
     Dates: start: 201503, end: 20160510

REACTIONS (1)
  - Thrombotic thrombocytopenic purpura [Not Recovered/Not Resolved]

NARRATIVE: CASE EVENT DATE: 20160216
